FAERS Safety Report 5233908-8 (Version None)
Quarter: 2007Q1

REPORT INFORMATION
  Report Type: 
  Country: None (occurrence: None)
  Receive Date: 20070208
  Receipt Date: 20070205
  Transmission Date: 20070707
  Serious: Yes (Other)
  Sender: FDA-Public Use
  Company Number: CHWYE524305FEB07

PATIENT
  Age: 47 Year
  Sex: Male

DRUGS (5)
  1. EFFEXOR [Suspect]
     Indication: DEPRESSION
     Route: 048
     Dates: start: 20050101, end: 20070101
  2. EFFEXOR [Suspect]
     Indication: ANXIETY
  3. EFFEXOR [Suspect]
     Indication: PSYCHOMOTOR RETARDATION
  4. ECOFENAC [Concomitant]
     Indication: PAIN
  5. TRITTICO [Concomitant]
     Indication: DEPRESSION
     Dates: start: 20060101, end: 20070101

REACTIONS (4)
  - DRUG EFFECT DECREASED [None]
  - DRUG WITHDRAWAL SYNDROME [None]
  - FEELING HOT [None]
  - HALLUCINATION, AUDITORY [None]
